FAERS Safety Report 16788712 (Version 1)
Quarter: 2019Q3

REPORT INFORMATION
  Report Type: Spontaneous
  Country: DK (occurrence: DK)
  Receive Date: 20190910
  Receipt Date: 20190910
  Transmission Date: 20191005
  Serious: Yes (Hospitalization)
  Sender: FDA-Public Use
  Company Number: DK-ACCORD-154388

PATIENT
  Age: 66 Year
  Sex: Female

DRUGS (3)
  1. SIMVASTATIN. [Concomitant]
     Active Substance: SIMVASTATIN
     Indication: HYPERCHOLESTEROLAEMIA
     Dosage: STRENGTH: 20 MG
     Route: 048
     Dates: start: 20170925
  2. AMLODIPINE [Concomitant]
     Active Substance: AMLODIPINE BESYLATE
     Indication: HYPERTENSION
     Dosage: STRENGTH: 5 MG
     Route: 048
     Dates: start: 20170925
  3. ARIPIPRAZOLE ACCORD [Suspect]
     Active Substance: ARIPIPRAZOLE
     Indication: BIPOLAR DISORDER
     Dosage: DOSE: 10 MG X 2 DAILY
     Route: 048
     Dates: start: 201901, end: 20190521

REACTIONS (4)
  - Osmotic demyelination syndrome [Unknown]
  - Hyponatraemia [Recovered/Resolved]
  - Abnormal behaviour [Unknown]
  - Confusional state [Unknown]

NARRATIVE: CASE EVENT DATE: 2019
